FAERS Safety Report 14130288 (Version 2)
Quarter: 2018Q1

REPORT INFORMATION
  Report Type: Report from Study
  Country: US (occurrence: US)
  Receive Date: 20171026
  Receipt Date: 20180123
  Transmission Date: 20180508
  Serious: No
  Sender: FDA-Public Use
  Company Number: US-AMGEN-USASL2017145618

PATIENT
  Age: 82 Year
  Sex: Female

DRUGS (1)
  1. REPATHA [Suspect]
     Active Substance: EVOLOCUMAB
     Indication: HYPERCHOLESTEROLAEMIA
     Dosage: UNK, Q2WK
     Route: 065

REACTIONS (6)
  - Red blood cell sedimentation rate increased [Unknown]
  - Oedema peripheral [Unknown]
  - Therapy non-responder [Unknown]
  - Malaise [Not Recovered/Not Resolved]
  - Infection [Unknown]
  - Inflammation [Unknown]

NARRATIVE: CASE EVENT DATE: 201709
